FAERS Safety Report 13144127 (Version 1)
Quarter: 2017Q1

REPORT INFORMATION
  Report Type: Spontaneous
  Country: US (occurrence: US)
  Receive Date: 20170124
  Receipt Date: 20170124
  Transmission Date: 20170428
  Serious: No
  Sender: FDA-Public Use
  Company Number: US-DEXPHARM-20161633

PATIENT
  Age: 72 Year
  Sex: Female
  Weight: 54.42 kg

DRUGS (2)
  1. OMEPRAZOLE DELAYED RELEASE [Suspect]
     Active Substance: OMEPRAZOLE
     Indication: GASTROOESOPHAGEAL REFLUX DISEASE
     Dosage: 20 MG, SINGLE
     Route: 048
     Dates: start: 20160705, end: 20160705
  2. CALCIUM [Concomitant]
     Active Substance: CALCIUM
     Indication: ROUTINE HEALTH MAINTENANCE
     Dosage: UNK
     Route: 048
     Dates: start: 2006

REACTIONS (3)
  - Pruritus generalised [Recovered/Resolved]
  - Reaction to drug excipients [Recovered/Resolved]
  - Urticaria [Recovered/Resolved]

NARRATIVE: CASE EVENT DATE: 20160705
